FAERS Safety Report 7805085-8 (Version None)
Quarter: 2011Q4

REPORT INFORMATION
  Report Type: 
  Country: None (occurrence: None)
  Receive Date: 20111010
  Receipt Date: 20111006
  Transmission Date: 20120403
  Serious: Yes (Other)
  Sender: FDA-Public Use
  Company Number: NL-ABBOTT-11P-114-0707845-00

PATIENT
  Sex: Female
  Weight: 87 kg

DRUGS (7)
  1. LEUPROLIDE ACETATE [Suspect]
     Indication: LEIOMYOMA
     Route: 058
     Dates: start: 20101115
  2. FERROUS FUMARATE [Concomitant]
     Indication: HAEMORRHAGE
  3. FERROUS FUMARATE [Concomitant]
     Indication: HAEMOGLOBIN DECREASED
     Route: 048
     Dates: start: 20101001, end: 20110101
  4. CLEMASTINE FUMARATE [Concomitant]
     Indication: ANTIALLERGIC THERAPY
     Dosage: 1 UNIT TWICE DAILY AT NEEDED
     Route: 048
     Dates: start: 20100101
  5. IRBESARTAN [Concomitant]
     Indication: HYPERTENSION
     Route: 048
     Dates: start: 20000101
  6. LEUPROLIDE ACETATE [Suspect]
     Indication: MENORRHAGIA
  7. FERROUS FUMARATE [Concomitant]
     Indication: LEIOMYOMA

REACTIONS (4)
  - MENORRHAGIA [None]
  - HOT FLUSH [None]
  - PALPITATIONS [None]
  - MIDDLE INSOMNIA [None]
